FAERS Safety Report 7099909-2 (Version None)
Quarter: 2010Q4

REPORT INFORMATION
  Report Type: 
  Country: None (occurrence: None)
  Receive Date: 20101112
  Receipt Date: 20101102
  Transmission Date: 20110411
  Serious: Yes (Other)
  Sender: FDA-Public Use
  Company Number: US-JNJFOC-20101102836

PATIENT
  Age: 12 Year
  Sex: Male
  Weight: 50.35 kg

DRUGS (4)
  1. TYLENOL (CAPLET) [Suspect]
     Route: 048
  2. TYLENOL (CAPLET) [Suspect]
     Indication: PYREXIA
     Dosage: 1000 MG, TWICE ON 01-NOV-2010 8 HOURS APART AND ONCE AT 0400 ON 02-NOV-2010
     Route: 048
  3. PENICILLIN V POTASSIUM [Concomitant]
     Indication: PHARYNGITIS STREPTOCOCCAL
  4. VITAMIN TAB [Concomitant]
     Indication: MEDICAL DIET
     Dosage: 2 GUMMIES DAILY

REACTIONS (1)
  - HALLUCINATION [None]
